FAERS Safety Report 18048851 (Version 1)
Quarter: 2020Q3

REPORT INFORMATION
  Report Type: Report from Study
  Country: CA (occurrence: CA)
  Receive Date: 20200721
  Receipt Date: 20200721
  Transmission Date: 20201103
  Serious: Yes (Other)
  Sender: FDA-Public Use
  Company Number: CA-ACCORD-191361

PATIENT
  Age: 51 Year
  Sex: Female

DRUGS (13)
  1. ARAVA [Concomitant]
     Active Substance: LEFLUNOMIDE
     Dosage: FREQUENCY: 1 EVERY 1 DAYS
  2. COSENTYX [Suspect]
     Active Substance: SECUKINUMAB
     Indication: PSORIATIC ARTHROPATHY
     Dosage: FREQUENCY: 1 EVERY 1 MONTHS
  3. COSENTYX [Suspect]
     Active Substance: SECUKINUMAB
     Indication: PSORIATIC ARTHROPATHY
     Dosage: FREQUENCY: 1 EVERY 1 MONTHS
     Route: 058
  4. COSENTYX [Suspect]
     Active Substance: SECUKINUMAB
     Indication: PSORIATIC ARTHROPATHY
  5. METHOTREXATE. [Suspect]
     Active Substance: METHOTREXATE
     Indication: PRODUCT USED FOR UNKNOWN INDICATION
  6. HYDROXYCHLOROQUINE [Concomitant]
     Active Substance: HYDROXYCHLOROQUINE
  7. COSENTYX [Suspect]
     Active Substance: SECUKINUMAB
     Indication: PSORIATIC ARTHROPATHY
  8. ADVIL [Concomitant]
     Active Substance: IBUPROFEN
  9. PERINDOPRIL [Concomitant]
     Active Substance: PERINDOPRIL
     Dosage: FREQUENCY: 1 EVERY 1 DAYS
  10. CELEBREX [Concomitant]
     Active Substance: CELECOXIB
  11. HUMIRA [Concomitant]
     Active Substance: ADALIMUMAB
     Dosage: DOSAGE FORM: SOLUTION SUBCUTANEOUS
     Route: 058
  12. SULFASALAZINE. [Concomitant]
     Active Substance: SULFASALAZINE
  13. PARACETAMOL [Concomitant]
     Active Substance: ACETAMINOPHEN

REACTIONS (25)
  - Arthralgia [Not Recovered/Not Resolved]
  - Osteomyelitis [Not Recovered/Not Resolved]
  - Productive cough [Not Recovered/Not Resolved]
  - Seasonal affective disorder [Not Recovered/Not Resolved]
  - Sputum discoloured [Not Recovered/Not Resolved]
  - Pain [Not Recovered/Not Resolved]
  - Stress [Not Recovered/Not Resolved]
  - Throat irritation [Not Recovered/Not Resolved]
  - Urinary tract pain [Not Recovered/Not Resolved]
  - Oropharyngeal pain [Not Recovered/Not Resolved]
  - Skin haemorrhage [Not Recovered/Not Resolved]
  - Burning sensation [Not Recovered/Not Resolved]
  - Dizziness [Not Recovered/Not Resolved]
  - Feeling abnormal [Not Recovered/Not Resolved]
  - Nausea [Not Recovered/Not Resolved]
  - Psoriasis [Not Recovered/Not Resolved]
  - Fatigue [Not Recovered/Not Resolved]
  - Pruritus [Not Recovered/Not Resolved]
  - Urinary tract infection [Not Recovered/Not Resolved]
  - Headache [Not Recovered/Not Resolved]
  - Oral disorder [Not Recovered/Not Resolved]
  - Skin exfoliation [Not Recovered/Not Resolved]
  - Hangover [Not Recovered/Not Resolved]
  - Malaise [Not Recovered/Not Resolved]
  - Movement disorder [Not Recovered/Not Resolved]
